FAERS Safety Report 19930558 (Version 1)
Quarter: 2021Q4

REPORT INFORMATION
  Report Type: Spontaneous
  Country: PL (occurrence: PL)
  Receive Date: 20211008
  Receipt Date: 20211008
  Transmission Date: 20220303
  Serious: Yes (Other)
  Sender: FDA-Public Use
  Company Number: None

PATIENT
  Age: 62 Year
  Sex: Female
  Weight: 50 kg

DRUGS (4)
  1. LEUCOVORIN [Suspect]
     Active Substance: LEUCOVORIN
     Indication: Colon cancer
     Dosage: 298MILLIGRAM
     Route: 042
     Dates: start: 20210202, end: 20210204
  2. FLUOROURACIL [Suspect]
     Active Substance: FLUOROURACIL
     Indication: Colon cancer
     Dosage: 1430MILLIGRAM
     Route: 041
     Dates: start: 20210202, end: 20210204
  3. FLUOROURACIL [Suspect]
     Active Substance: FLUOROURACIL
     Dosage: 596MILIGRAM
     Route: 040
     Dates: start: 20210202, end: 20210204
  4. OXALIPLATIN [Suspect]
     Active Substance: OXALIPLATIN
     Indication: Colon cancer
     Dosage: 80MILLIGRAM
     Route: 042
     Dates: start: 20210202, end: 20210204

REACTIONS (2)
  - Thrombocytopenia [Unknown]
  - Neutropenia [Unknown]

NARRATIVE: CASE EVENT DATE: 20210212
